FAERS Safety Report 14284438 (Version 1)
Quarter: 2017Q4

REPORT INFORMATION
  Report Type: Spontaneous
  Country: US (occurrence: US)
  Receive Date: 20171214
  Receipt Date: 20171214
  Transmission Date: 20180321
  Serious: Yes (Disabling)
  Sender: FDA-Public Use
  Company Number: None

PATIENT
  Sex: Female
  Weight: 85.5 kg

DRUGS (1)
  1. GENTAMICIN 0.3% OPHTH SOLN 5ML [Suspect]
     Active Substance: GENTAMICIN
     Indication: CONJUNCTIVITIS BACTERIAL
     Dosage: ?          QUANTITY:15 DROP(S);?
     Route: 047
     Dates: start: 20171124, end: 20171208

REACTIONS (4)
  - Instillation site irritation [None]
  - Instillation site erythema [None]
  - Eye disorder [None]
  - Instillation site pain [None]

NARRATIVE: CASE EVENT DATE: 20171201
